FAERS Safety Report 7201516-5 (Version None)
Quarter: 2010Q4

REPORT INFORMATION
  Report Type: 
  Country: None (occurrence: None)
  Receive Date: 20101229
  Receipt Date: 20101220
  Transmission Date: 20110411
  Serious: Yes (Hospitalization)
  Sender: FDA-Public Use
  Company Number: FR-BRISTOL-MYERS SQUIBB COMPANY-15462112

PATIENT
  Age: 65 Year
  Sex: Female

DRUGS (7)
  1. GLUCOVANCE [Suspect]
     Indication: TYPE 1 DIABETES MELLITUS
     Route: 048
     Dates: end: 20100720
  2. FUROSEMIDE [Concomitant]
     Indication: HYPERTENSION
     Route: 048
     Dates: end: 20100720
  3. PANTOPRAZOLE [Concomitant]
     Indication: ULCER
     Route: 048
     Dates: end: 20100720
  4. TAHOR [Concomitant]
     Indication: DYSLIPIDAEMIA
     Route: 048
     Dates: end: 20100720
  5. VASTAREL [Concomitant]
     Indication: CARDIOVASCULAR EVENT PROPHYLAXIS
     Route: 048
     Dates: end: 20100720
  6. SEROPRAM [Concomitant]
     Indication: DEPRESSION
     Route: 048
     Dates: end: 20100720
  7. AMLODIPINE [Concomitant]
     Indication: HYPERTENSION
     Dosage: 1 DF = 40MG/10MG
     Route: 048
     Dates: end: 20100720

REACTIONS (2)
  - HYPOGLYCAEMIA [None]
  - RENAL FAILURE ACUTE [None]
